FAERS Safety Report 21187066 (Version 1)
Quarter: 2022Q3

REPORT INFORMATION
  Report Type: Spontaneous
  Country: US (occurrence: None)
  Receive Date: 20220808
  Receipt Date: 20220808
  Transmission Date: 20221027
  Serious: Yes (Hospitalization)
  Sender: FDA-Public Use
  Company Number: None

PATIENT
  Age: 48 Year
  Sex: Male

DRUGS (1)
  1. SILDENAFIL CITRATE [Suspect]
     Active Substance: SILDENAFIL CITRATE
     Indication: Pulmonary arterial hypertension
     Dosage: 40MG 3 TIMES A DAY BY MOUTH?
     Route: 048
     Dates: start: 20220421

REACTIONS (2)
  - Malnutrition [None]
  - Weight decreased [None]

NARRATIVE: CASE EVENT DATE: 20220726
